FAERS Safety Report 9014281 (Version 1)
Quarter: 2013Q1

REPORT INFORMATION
  Report Type: Spontaneous
  Country: MX (occurrence: MX)
  Receive Date: 20130115
  Receipt Date: 20130115
  Transmission Date: 20140127
  Serious: Yes (Other)
  Sender: FDA-Public Use
  Company Number: PHHY2013MX002985

PATIENT
  Age: 65 Year
  Sex: Female

DRUGS (5)
  1. STALEVO [Suspect]
     Indication: PARKINSON^S DISEASE
     Dosage: 2 DF, DAILY
     Route: 048
     Dates: start: 200910
  2. INSOGEN PLUS [Concomitant]
     Dosage: 2 DF, DAILY
  3. BEKUNIS                            /00355801/ [Concomitant]
  4. ANAPSIQUE [Concomitant]
  5. BEDOYECTA [Concomitant]

REACTIONS (7)
  - Near drowning [Unknown]
  - Blood pressure decreased [Not Recovered/Not Resolved]
  - Syncope [Not Recovered/Not Resolved]
  - Choking sensation [Not Recovered/Not Resolved]
  - Incorrect dose administered [Unknown]
  - Dysphagia [Not Recovered/Not Resolved]
  - Headache [Not Recovered/Not Resolved]
